FAERS Safety Report 4961068-7 (Version None)
Quarter: 2006Q1

REPORT INFORMATION
  Report Type: 
  Country: None (occurrence: None)
  Receive Date: 20060127
  Receipt Date: 20050830
  Transmission Date: 20060701
  Serious: Yes (Hospitalization, Other)
  Sender: FDA-Public Use
  Company Number: 2005-US-00037

PATIENT
  Age: 52 Year
  Sex: Male
  Weight: 96.6162 kg

DRUGS (3)
  1. CLOZAPINE [Suspect]
     Indication: SCHIZOPHRENIA
     Dosage: 525 MG, QD, ORAL
     Route: 048
     Dates: start: 19890101
  2. OLANZAPINE [Concomitant]
  3. SERTRALINE HYDROCHLORIDE [Concomitant]

REACTIONS (1)
  - INTESTINAL OBSTRUCTION [None]
